FAERS Safety Report 25980040 (Version 1)
Quarter: 2025Q4

REPORT INFORMATION
  Report Type: Spontaneous
  Country: US (occurrence: None)
  Receive Date: 20251029
  Receipt Date: 20251029
  Transmission Date: 20260117
  Serious: Yes (Life-Threatening, Disabling)
  Sender: FDA-CTU
  Company Number: None

PATIENT

DRUGS (1)
  1. FLUOXETINE [Suspect]
     Active Substance: FLUOXETINE HYDROCHLORIDE
     Indication: Depression
     Dates: start: 20110101, end: 20220315

REACTIONS (14)
  - Fear [None]
  - Confusional state [None]
  - Therapy change [None]
  - Feeling abnormal [None]
  - Cerebral disorder [None]
  - Paraesthesia [None]
  - Electric shock sensation [None]
  - Vision blurred [None]
  - Vitreous floaters [None]
  - Fatigue [None]
  - Tremor [None]
  - Crying [None]
  - Withdrawal syndrome [None]
  - Product communication issue [None]

NARRATIVE: CASE EVENT DATE: 20220301
